FAERS Safety Report 5726613-2 (Version None)
Quarter: 2008Q2

REPORT INFORMATION
  Report Type: 
  Country: None (occurrence: None)
  Receive Date: 20080502
  Receipt Date: 20080423
  Transmission Date: 20081010
  Serious: Yes (Other)
  Sender: FDA-Public Use
  Company Number: US-JNJFOC-20080406590

PATIENT
  Sex: Female
  Weight: 48.99 kg

DRUGS (2)
  1. ORTHO EVRA [Suspect]
     Indication: CONTRACEPTION
     Route: 062
  2. CYMBALTA [Concomitant]
     Indication: DEPRESSION
     Route: 065

REACTIONS (1)
  - LIPOATROPHY [None]
